FAERS Safety Report 4463310-8 (Version None)
Quarter: 2004Q3

REPORT INFORMATION
  Report Type: 
  Country: None (occurrence: None)
  Receive Date: 20040930
  Receipt Date: 20040826
  Transmission Date: 20050211
  Serious: No
  Sender: FDA-Public Use
  Company Number: US-BRISTOL-MYERS SQUIBB COMPANY-12684437

PATIENT
  Age: 41 Year
  Sex: Female
  Weight: 75 kg

DRUGS (1)
  1. REYATAZ [Suspect]
     Indication: HIV TEST POSITIVE
     Route: 048
     Dates: start: 20040821

REACTIONS (1)
  - JAUNDICE [None]
